FAERS Safety Report 10831096 (Version 1)
Quarter: 2015Q1

REPORT INFORMATION
  Report Type: Report from Study
  Country: US (occurrence: US)
  Receive Date: 20150219
  Receipt Date: 20150219
  Transmission Date: 20150721
  Serious: Yes (Hospitalization)
  Sender: FDA-Public Use
  Company Number: US-ABBVIE-14P-163-1192846-00

PATIENT
  Age: 63 Year
  Sex: Female
  Weight: 52.21 kg

DRUGS (6)
  1. HYDROCODONE [Concomitant]
     Active Substance: HYDROCODONE
     Indication: PRODUCT USED FOR UNKNOWN INDICATION
  2. HUMIRA [Suspect]
     Active Substance: ADALIMUMAB
     Indication: RHEUMATOID ARTHRITIS
     Dates: end: 20131220
  3. NAPROXEN. [Concomitant]
     Active Substance: NAPROXEN
     Indication: PRODUCT USED FOR UNKNOWN INDICATION
  4. HYDROCODONE [Concomitant]
     Active Substance: HYDROCODONE
     Indication: PRODUCT USED FOR UNKNOWN INDICATION
  5. PREDNISONE. [Concomitant]
     Active Substance: PREDNISONE
     Indication: PRODUCT USED FOR UNKNOWN INDICATION
  6. DOXYCYCLINE. [Suspect]
     Active Substance: DOXYCYCLINE
     Indication: CYSTITIS
     Dates: start: 20140103

REACTIONS (16)
  - Escherichia urinary tract infection [Recovered/Resolved]
  - Abdominal tenderness [Recovered/Resolved]
  - Headache [Unknown]
  - Chills [Unknown]
  - Asthenia [Not Recovered/Not Resolved]
  - Fatigue [Unknown]
  - Nausea [Recovered/Resolved]
  - Sinusitis [Not Recovered/Not Resolved]
  - Tongue haemorrhage [Recovering/Resolving]
  - Urine odour abnormal [Recovering/Resolving]
  - Dehydration [Recovered/Resolved]
  - Tongue discolouration [Recovering/Resolving]
  - Chromaturia [Recovering/Resolving]
  - White blood cell count increased [Unknown]
  - Cystitis [Recovered/Resolved]
  - Dizziness [Recovered/Resolved]

NARRATIVE: CASE EVENT DATE: 201208
